FAERS Safety Report 13728959 (Version 1)
Quarter: 2017Q3

REPORT INFORMATION
  Report Type: Spontaneous
  Country: US (occurrence: US)
  Receive Date: 20170707
  Receipt Date: 20170707
  Transmission Date: 20171127
  Serious: No
  Sender: FDA-Public Use
  Company Number: US-TEVA-785348ACC

PATIENT
  Age: 36 Year
  Sex: Female
  Weight: 73.55 kg

DRUGS (3)
  1. BUMETANIDE. [Concomitant]
     Active Substance: BUMETANIDE
     Indication: DIABETES MELLITUS
  2. TAKE ACTION [Suspect]
     Active Substance: LEVONORGESTREL
     Indication: POST COITAL CONTRACEPTION
     Dates: start: 20170623, end: 20170623
  3. METFORMIN [Concomitant]
     Active Substance: METFORMIN HYDROCHLORIDE
     Indication: DIABETES MELLITUS

REACTIONS (7)
  - Headache [Recovered/Resolved]
  - Nausea [Recovered/Resolved]
  - Vomiting [Recovered/Resolved]
  - Vaginal haemorrhage [Not Recovered/Not Resolved]
  - Influenza [Recovered/Resolved]
  - Menopausal symptoms [Recovered/Resolved]
  - Muscle spasms [Recovered/Resolved]

NARRATIVE: CASE EVENT DATE: 20170623
